FAERS Safety Report 5289563-4 (Version None)
Quarter: 2007Q2

REPORT INFORMATION
  Report Type: 
  Country: None (occurrence: None)
  Receive Date: 20070406
  Receipt Date: 20070327
  Transmission Date: 20071010
  Serious: Yes (Death)
  Sender: FDA-Public Use
  Company Number: US-ROCHE-479703

PATIENT
  Age: 41 Year
  Sex: Female

DRUGS (7)
  1. PEGASYS [Suspect]
     Indication: HEPATITIS C
     Route: 065
     Dates: start: 20060915
  2. RIBAVIRIN [Suspect]
     Indication: HEPATITIS C
     Route: 065
     Dates: start: 20060915, end: 20061007
  3. RIBAVIRIN [Suspect]
     Dosage: DOSE DECREASED TO 1000 MG IN DIVIDED DOSES.
     Route: 065
     Dates: start: 20061007
  4. PROCRIT [Concomitant]
  5. LEXAPRO [Concomitant]
     Indication: DEPRESSION
  6. LACTULOSE [Concomitant]
  7. MYCELEX [Concomitant]
     Dosage: FORMULATION REPORTED AS 'TROCHES.'

REACTIONS (2)
  - ANAEMIA [None]
  - HEPATITIS C [None]
